FAERS Safety Report 20037976 (Version 1)
Quarter: 2021Q4

REPORT INFORMATION
  Report Type: Spontaneous
  Country: US (occurrence: US)
  Receive Date: 20211105
  Receipt Date: 20211105
  Transmission Date: 20220304
  Serious: No
  Sender: FDA-Public Use
  Company Number: US-PFIZER INC-202101334344

PATIENT
  Age: 51 Year
  Sex: Male
  Weight: 79.819 kg

DRUGS (1)
  1. BOSULIF [Suspect]
     Active Substance: BOSUTINIB MONOHYDRATE
     Indication: Neoplasm malignant
     Dosage: 500 MG, DAILY

REACTIONS (1)
  - Feeling abnormal [Unknown]
